FAERS Safety Report 8198416-3 (Version None)
Quarter: 2012Q1

REPORT INFORMATION
  Report Type: 
  Country: None (occurrence: None)
  Receive Date: 20120309
  Receipt Date: 20111218
  Transmission Date: 20120608
  Serious: No
  Sender: FDA-Public Use
  Company Number: US-AMGEN-USASP2011046267

PATIENT
  Age: 89 Year
  Sex: Female
  Weight: 55.329 kg

DRUGS (7)
  1. OMEPRAZOLE [Concomitant]
  2. ASPIRIN [Concomitant]
  3. METOPROLOL SUCCINATE [Concomitant]
  4. PROLIA [Suspect]
     Indication: OSTEOPOROSIS POSTMENOPAUSAL
     Dosage: 60 MG, Q6MO
     Dates: start: 20110307
  5. LOVASTATIN [Concomitant]
  6. NIFEDIPINE [Concomitant]
  7. LEVOTHYROXINE SODIUM [Concomitant]

REACTIONS (2)
  - CYSTITIS [None]
  - MEMORY IMPAIRMENT [None]
